FAERS Safety Report 6925534-7 (Version None)
Quarter: 2010Q3

REPORT INFORMATION
  Report Type: 
  Country: None (occurrence: None)
  Receive Date: 20100810
  Receipt Date: 20100804
  Transmission Date: 20110219
  Serious: Yes (Death, Life-Threatening, Hospitalization)
  Sender: FDA-Public Use
  Company Number: 2010SP042386

PATIENT
  Age: 65 Year
  Sex: Male

DRUGS (7)
  1. TEMODAL [Suspect]
     Indication: GLIOBLASTOMA
     Dosage: 50 MG/M2;PO, 150 MG/M2; PO
     Route: 048
     Dates: start: 20051102, end: 20051215
  2. TEMODAL [Suspect]
     Indication: GLIOBLASTOMA
     Dosage: 50 MG/M2;PO, 150 MG/M2; PO
     Route: 048
     Dates: start: 20060113, end: 20060316
  3. INDOMETHACIN [Suspect]
     Indication: GLIOBLASTOMA
     Dosage: 25 MG;BID, 25 MG;BID
     Dates: start: 20051102, end: 20051215
  4. INDOMETHACIN [Suspect]
     Indication: GLIOBLASTOMA
     Dosage: 25 MG;BID, 25 MG;BID
     Dates: start: 20060113, end: 20060316
  5. DEXAMETHASONE [Concomitant]
  6. VALPROIC ACID [Concomitant]
  7. PANTOPRAZOLE SODIUM [Concomitant]

REACTIONS (2)
  - GENERAL PHYSICAL HEALTH DETERIORATION [None]
  - INTESTINAL PERFORATION [None]
